FAERS Safety Report 15991754 (Version 5)
Quarter: 2019Q3

REPORT INFORMATION
  Report Type: Spontaneous
  Country: US (occurrence: US)
  Receive Date: 20190221
  Receipt Date: 20190823
  Transmission Date: 20191004
  Serious: Yes (Other)
  Sender: FDA-Public Use
  Company Number: US-ASTRAZENECA-2018SF21758

PATIENT
  Age: 66 Year
  Sex: Female
  Weight: 68 kg

DRUGS (25)
  1. LISINOPRIL. [Concomitant]
     Active Substance: LISINOPRIL
  2. LANTUS [Concomitant]
     Active Substance: INSULIN GLARGINE
  3. DIPRIVAN [Concomitant]
     Active Substance: PROPOFOL
  4. PEPTO-BISMOL [Concomitant]
     Active Substance: BISMUTH SUBSALICYLATE
     Dates: start: 2014
  5. HYTRIN [Concomitant]
     Active Substance: TERAZOSIN HYDROCHLORIDE
  6. MORPHINE SULFATE. [Concomitant]
     Active Substance: MORPHINE SULFATE
  7. ANCEF [Concomitant]
     Active Substance: CEFAZOLIN SODIUM
  8. TUMS [Concomitant]
     Active Substance: CALCIUM CARBONATE
     Dates: start: 2009, end: 2013
  9. TUMS [Concomitant]
     Active Substance: CALCIUM CARBONATE
     Dates: start: 2014
  10. PEPTO-BISMOL [Concomitant]
     Active Substance: BISMUTH SUBSALICYLATE
     Dates: start: 2009, end: 2013
  11. CLARITIN [Concomitant]
     Active Substance: LORATADINE
  12. ZOCOR [Concomitant]
     Active Substance: SIMVASTATIN
  13. APRESOLINE HYDROCHLORIDE [Concomitant]
     Active Substance: HYDRALAZINE HYDROCHLORIDE
  14. LOPRESSOR [Concomitant]
     Active Substance: METOPROLOL TARTRATE
  15. RENAGEL [Concomitant]
     Active Substance: SEVELAMER HYDROCHLORIDE
  16. GABAPENTIN. [Concomitant]
     Active Substance: GABAPENTIN
  17. VERSED [Concomitant]
     Active Substance: MIDAZOLAM HYDROCHLORIDE
  18. NEXIUM [Suspect]
     Active Substance: ESOMEPRAZOLE MAGNESIUM
     Indication: GASTROOESOPHAGEAL REFLUX DISEASE
     Route: 048
     Dates: start: 20140101, end: 20151231
  19. PLAVIX [Concomitant]
     Active Substance: CLOPIDOGREL BISULFATE
  20. LIDOCAINE. [Concomitant]
     Active Substance: LIDOCAINE
  21. NORCO [Concomitant]
     Active Substance: ACETAMINOPHEN\HYDROCODONE BITARTRATE
  22. NORVASC [Concomitant]
     Active Substance: AMLODIPINE BESYLATE
  23. WELLBUTRIN [Concomitant]
     Active Substance: BUPROPION HYDROCHLORIDE
  24. ZOLOFT [Concomitant]
     Active Substance: SERTRALINE HYDROCHLORIDE
  25. KETALAR [Concomitant]
     Active Substance: KETAMINE HYDROCHLORIDE

REACTIONS (6)
  - Acute kidney injury [Not Recovered/Not Resolved]
  - Nephrogenic anaemia [Unknown]
  - Chronic kidney disease [Not Recovered/Not Resolved]
  - End stage renal disease [Not Recovered/Not Resolved]
  - Renal failure [Unknown]
  - Renal injury [Unknown]

NARRATIVE: CASE EVENT DATE: 2014
